FAERS Safety Report 8962304 (Version 1)
Quarter: 2012Q4

REPORT INFORMATION
  Report Type: Spontaneous
  Country: US (occurrence: None)
  Receive Date: 20121204
  Receipt Date: 20121204
  Transmission Date: 20130627
  Serious: Yes (Other)
  Sender: FDA-Public Use
  Company Number: COL_12744_2012

PATIENT
  Age: 59 Year
  Sex: Male

DRUGS (14)
  1. COLGATE TOTAL GUM DEFENSE [Suspect]
     Indication: DENTAL CARIES
     Dosage: covers head of toothbrush twice/3-4 times daily/ oral
     Route: 048
     Dates: start: 201211, end: 20121116
  2. COLGATE TOTAL GUM DEFENSE [Suspect]
     Indication: DENTAL PLAQUE
     Dosage: covers head of toothbrush twice/3-4 times daily/ oral
     Route: 048
     Dates: start: 201211, end: 20121116
  3. COLGATE TOTAL GUM DEFENSE [Suspect]
     Dosage: covers head of toothbrush twice/3-4 times daily/ oral
     Route: 048
     Dates: start: 201211, end: 20121116
  4. PROTONIX [Concomitant]
  5. ASMANEX [Concomitant]
  6. TYLENOL /00020001/ [Concomitant]
  7. LYRICA [Concomitant]
  8. PILL TO SHRINK MY PROSTATE [Concomitant]
  9. UNKNOWN NEBULIZER TREATMENT [Concomitant]
  10. ANTI-ASTHMATICS [Concomitant]
  11. ANTIHYPERTENSIVES [Concomitant]
  12. OXYGEN [Concomitant]
  13. ORAL ANTIDIABETICS [Concomitant]
  14. COLAGET TOOTHBRUSH [Concomitant]

REACTIONS (4)
  - Gingival bleeding [None]
  - Gingival swelling [None]
  - Tooth abscess [None]
  - Tooth loss [None]
